FAERS Safety Report 20309422 (Version 1)
Quarter: 2022Q1

REPORT INFORMATION
  Report Type: Spontaneous
  Country: US (occurrence: None)
  Receive Date: 20220107
  Receipt Date: 20220107
  Transmission Date: 20220423
  Serious: Yes (Other)
  Sender: FDA-Public Use
  Company Number: None

PATIENT
  Age: 56 Year
  Sex: Female
  Weight: 56.25 kg

DRUGS (25)
  1. AJOVY [Suspect]
     Active Substance: FREMANEZUMAB-VFRM
     Indication: Migraine
  2. AIMOVIG [Suspect]
     Active Substance: ERENUMAB-AOOE
  3. RESTASIS [Concomitant]
     Active Substance: CYCLOSPORINE
  4. ACYCLOVIR [Concomitant]
     Active Substance: ACYCLOVIR
  5. ESTRIOL [Concomitant]
     Active Substance: ESTRIOL
  6. OMEPRAZOLE [Concomitant]
     Active Substance: OMEPRAZOLE
  7. POTASSIUM [Concomitant]
     Active Substance: POTASSIUM
  8. PROCHLORENZAPINE [Concomitant]
  9. TACROLIMUS [Concomitant]
     Active Substance: TACROLIMUS
  10. LEVOTHYROXINE [Concomitant]
     Active Substance: LEVOTHYROXINE
  11. VENLAFAXINE [Concomitant]
     Active Substance: VENLAFAXINE HYDROCHLORIDE
  12. BUPROPION [Concomitant]
     Active Substance: BUPROPION
  13. BUSPIRIONE [Concomitant]
  14. LORAZEPAM [Concomitant]
     Active Substance: LORAZEPAM
  15. NELOXALONE [Concomitant]
  16. GABAPENTIN [Concomitant]
     Active Substance: GABAPENTIN
  17. HYDROCODONE [Concomitant]
     Active Substance: HYDROCODONE
  18. CYCLOBENZAPRINE [Concomitant]
     Active Substance: CYCLOBENZAPRINE
  19. TOPIRAMATE [Concomitant]
     Active Substance: TOPIRAMATE
  20. SUMATRIPTAN [Concomitant]
     Active Substance: SUMATRIPTAN
  21. UBRELVY [Concomitant]
     Active Substance: UBROGEPANT
  22. BENADRYL [Concomitant]
     Active Substance: DIPHENHYDRAMINE HYDROCHLORIDE
  23. MULTI-VITAMIN [Concomitant]
     Active Substance: .ALPHA.-TOCOPHEROL ACETATE, DL-\ASCORBIC ACID\CYANOCOBALAMIN\FLUORIDE ION\FOLIC ACID\NIACIN\PYRIDOXI
  24. SUDAFED [Concomitant]
     Active Substance: PSEUDOEPHEDRINE HYDROCHLORIDE
  25. BIT D3 LIQUID [Concomitant]

REACTIONS (6)
  - Dyspnoea [None]
  - Heart rate irregular [None]
  - Palpitations [None]
  - Heart rate increased [None]
  - Dizziness postural [None]
  - Syncope [None]

NARRATIVE: CASE EVENT DATE: 20211116
